FAERS Safety Report 7816339-3 (Version None)
Quarter: 2011Q4

REPORT INFORMATION
  Report Type: 
  Country: None (occurrence: None)
  Receive Date: 20111017
  Receipt Date: 20111010
  Transmission Date: 20120403
  Serious: Yes (Hospitalization)
  Sender: FDA-Public Use
  Company Number: US-BIOGENIDEC-2011BI030743

PATIENT
  Age: 53 Year
  Sex: Female

DRUGS (6)
  1. TYSABRI [Suspect]
     Route: 042
     Dates: start: 20111001
  2. MIRAPEX [Concomitant]
     Indication: RESTLESS LEGS SYNDROME
  3. CYMBALTA [Concomitant]
     Indication: DEPRESSION
  4. TYSABRI [Suspect]
     Indication: MULTIPLE SCLEROSIS
     Route: 042
     Dates: start: 20090331, end: 20110623
  5. LIPITOR [Concomitant]
     Indication: LIPIDS INCREASED
  6. GABAPENTIN [Concomitant]
     Indication: NEURALGIA

REACTIONS (2)
  - STREPTOCOCCAL ABSCESS [None]
  - PAIN IN JAW [None]
